FAERS Safety Report 4497541-8 (Version None)
Quarter: 2004Q4

REPORT INFORMATION
  Report Type: 
  Country: None (occurrence: None)
  Receive Date: 20041110
  Receipt Date: 20041104
  Transmission Date: 20050328
  Serious: Yes (Other)
  Sender: FDA-Public Use
  Company Number: JP-MERCK-0411USA01135

PATIENT
  Age: 11 Month
  Sex: Female

DRUGS (2)
  1. COSMEGEN [Suspect]
     Indication: NEPHROBLASTOMA
     Route: 042
     Dates: start: 20030101
  2. ONCOVIN [Concomitant]
     Indication: NEPHROBLASTOMA
     Route: 042
     Dates: start: 20030101

REACTIONS (5)
  - ANAEMIA [None]
  - HEPATIC FAILURE [None]
  - HEPATOSPLENOMEGALY [None]
  - PLATELET COUNT DECREASED [None]
  - VENOOCCLUSIVE LIVER DISEASE [None]
